FAERS Safety Report 6069803-4 (Version None)
Quarter: 2009Q1

REPORT INFORMATION
  Report Type: 
  Country: None (occurrence: None)
  Receive Date: 20090209
  Receipt Date: 20090130
  Transmission Date: 20090719
  Serious: Yes (Other)
  Sender: FDA-Public Use
  Company Number: FR-AMGEN-UK331102

PATIENT
  Sex: Female

DRUGS (2)
  1. ROMIPLOSTIM [Suspect]
     Indication: IDIOPATHIC THROMBOCYTOPENIC PURPURA
     Route: 065
  2. ROMIPLOSTIM [Suspect]
     Route: 065
     Dates: start: 20081127

REACTIONS (2)
  - HEADACHE [None]
  - NAUSEA [None]
